FAERS Safety Report 19240538 (Version 1)
Quarter: 2021Q2

REPORT INFORMATION
  Report Type: Spontaneous
  Country: US (occurrence: US)
  Receive Date: 20210511
  Receipt Date: 20210511
  Transmission Date: 20210717
  Serious: Yes (Hospitalization, Other)
  Sender: FDA-Public Use
  Company Number: US-ACCORD-220463

PATIENT
  Age: 35 Year
  Sex: Female

DRUGS (4)
  1. TRASTUZUMAB. [Suspect]
     Active Substance: TRASTUZUMAB
     Indication: BREAST CANCER
     Dates: start: 20170818, end: 20171201
  2. PERTUZUMAB. [Suspect]
     Active Substance: PERTUZUMAB
     Indication: BREAST CANCER
     Dates: start: 20170818, end: 20171201
  3. CARBOPLATIN. [Suspect]
     Active Substance: CARBOPLATIN
     Indication: BREAST CANCER
     Dates: start: 20170818, end: 20171201
  4. DOCETAXEL ACCORD [Suspect]
     Active Substance: DOCETAXEL
     Indication: CHEMOTHERAPY
     Dates: start: 20170818, end: 20171201

REACTIONS (9)
  - Dacryostenosis acquired [Unknown]
  - Irritability [Unknown]
  - Infection [Unknown]
  - Vulvovaginal candidiasis [Unknown]
  - Oedema peripheral [Unknown]
  - Oral pain [Unknown]
  - Vulvovaginal dryness [Unknown]
  - Constipation [Unknown]
  - Neuropathy peripheral [Unknown]
